FAERS Safety Report 7964739-3 (Version None)
Quarter: 2011Q4

REPORT INFORMATION
  Report Type: 
  Country: None (occurrence: None)
  Receive Date: 20111208
  Receipt Date: 20111128
  Transmission Date: 20120403
  Serious: Yes (Hospitalization)
  Sender: FDA-Public Use
  Company Number: US-ELI_LILLY_AND_COMPANY-US201111008870

PATIENT
  Age: 80 Year
  Sex: Female

DRUGS (3)
  1. ELAVIL [Concomitant]
     Indication: PAIN
  2. CYMBALTA [Suspect]
     Indication: MUSCULOSKELETAL PAIN
     Dosage: UNK, UNKNOWN
     Dates: end: 20111101
  3. TRAZODONE HCL [Concomitant]
     Indication: PAIN

REACTIONS (4)
  - PARANOIA [None]
  - LETHARGY [None]
  - DRUG INTERACTION [None]
  - AGITATION [None]
